FAERS Safety Report 7599645-X (Version None)
Quarter: 2011Q2

REPORT INFORMATION
  Report Type: 
  Country: None (occurrence: None)
  Receive Date: 20110621
  Receipt Date: 20110613
  Transmission Date: 20111010
  Serious: Yes (Hospitalization, Other)
  Sender: FDA-Public Use
  Company Number: 2011028871

PATIENT
  Age: 53 Year
  Sex: Female
  Weight: 83.4619 kg

DRUGS (18)
  1. ESTRING [Concomitant]
  2. SYNTHROID [Concomitant]
  3. HIZENTRA [Suspect]
     Indication: IMMUNODEFICIENCY COMMON VARIABLE
     Dosage: 9 G 1X/WEEK, 1 GM 5 ML VIAL; 45 ML IN 204 SITES OVER 1 HOUR, SUBCUTANEOUS
     Route: 058
     Dates: start: 20101218
  4. PROBIOTIC (LACTOBACILLUS ACIDOPHILUS) [Concomitant]
  5. VICODIN [Concomitant]
  6. LORATADINE [Concomitant]
  7. FLORINEF [Concomitant]
  8. VITAMIN D [Concomitant]
  9. LIDODERM [Concomitant]
  10. HIZENTRA [Suspect]
     Dosage: SUBCUTANEOUS
     Route: 058
  11. CLONAZEPAM [Concomitant]
  12. VIVELLE-DOT [Concomitant]
  13. HIZENTRA [Suspect]
     Dosage: 1 GM 5 ML VIA, SUBCUTANEOUS
     Route: 058
  14. LOTEMAX [Concomitant]
  15. LEXAPRO [Concomitant]
  16. ZOFRAN [Concomitant]
  17. RESTASIS [Concomitant]
  18. OXYCONTIN [Concomitant]

REACTIONS (8)
  - DYSPNOEA [None]
  - MUSCULOSKELETAL CHEST PAIN [None]
  - PRODUCTIVE COUGH [None]
  - CHILLS [None]
  - INTERSTITIAL LUNG DISEASE [None]
  - MALAISE [None]
  - PAIN [None]
  - CANDIDIASIS [None]
